FAERS Safety Report 5739470-5 (Version None)
Quarter: 2008Q2

REPORT INFORMATION
  Report Type: 
  Country: None (occurrence: None)
  Receive Date: 20080515
  Receipt Date: 20080508
  Transmission Date: 20081010
  Serious: Yes (Other)
  Sender: FDA-Public Use
  Company Number: DE-PFIZER INC-2008040106

PATIENT
  Sex: Male
  Weight: 74 kg

DRUGS (2)
  1. CHANTIX [Suspect]
     Indication: SMOKING CESSATION THERAPY
     Route: 048
     Dates: start: 20071116, end: 20080110
  2. CHANTIX [Suspect]
     Indication: TOBACCO ABUSE

REACTIONS (3)
  - ANXIETY [None]
  - MENTAL DISORDER [None]
  - PANIC DISORDER [None]
